FAERS Safety Report 9669671 (Version 1)
Quarter: 2013Q4

REPORT INFORMATION
  Report Type: Spontaneous
  Country: ES (occurrence: ES)
  Receive Date: 20131105
  Receipt Date: 20131105
  Transmission Date: 20140711
  Serious: Yes (Other)
  Sender: FDA-Public Use
  Company Number: ES-ELI_LILLY_AND_COMPANY-ES201310010504

PATIENT
  Age: 65 Year
  Sex: Female

DRUGS (1)
  1. COMPETACT [Suspect]
     Indication: PRODUCT USED FOR UNKNOWN INDICATION
     Dosage: UNK UNK, UNKNOWN
     Route: 065

REACTIONS (5)
  - Schizophrenia [Unknown]
  - Pruritus [Unknown]
  - Swelling face [Unknown]
  - Visual impairment [Unknown]
  - Weight increased [Unknown]
